FAERS Safety Report 7308605-5 (Version None)
Quarter: 2011Q1

REPORT INFORMATION
  Report Type: 
  Country: None (occurrence: None)
  Receive Date: 20110210
  Receipt Date: 20110127
  Transmission Date: 20110831
  Serious: Yes (Other)
  Sender: FDA-Public Use
  Company Number: 2011P1003847

PATIENT
  Age: 82 Year
  Sex: Female
  Weight: 49.8957 kg

DRUGS (11)
  1. ALENDRONATE [Concomitant]
  2. HYDRALAZINE HCL [Concomitant]
  3. TRIAMTERENE [Concomitant]
  4. SIMVASTATIN [Concomitant]
  5. COLCHICINE [Concomitant]
  6. METOPROLOL [Concomitant]
  7. AMLODIPINE [Concomitant]
  8. POTASSIUM [Concomitant]
  9. ANASTROZOLE [Concomitant]
  10. PREV MEDS [Concomitant]
  11. WARFARIN SODIUM [Suspect]
     Indication: THROMBOSIS PROPHYLAXIS
     Dosage: 5 MG;T W TH SA SU ; 2.5 MG;M F

REACTIONS (6)
  - DIZZINESS [None]
  - VERTIGO [None]
  - WEIGHT DECREASED [None]
  - BRADYCARDIA [None]
  - BALANCE DISORDER [None]
  - VISION BLURRED [None]
